FAERS Safety Report 22810452 (Version 3)
Quarter: 2025Q1

REPORT INFORMATION
  Report Type: Spontaneous
  Country: CA (occurrence: CA)
  Receive Date: 20230810
  Receipt Date: 20250129
  Transmission Date: 20250409
  Serious: Yes (Other)
  Sender: ABBVIE
  Company Number: CA-ABBVIE-5361325

PATIENT
  Age: 38 Year
  Sex: Female

DRUGS (7)
  1. HUMIRA [Suspect]
     Active Substance: ADALIMUMAB
     Indication: Product used for unknown indication
     Route: 058
     Dates: start: 2019, end: 2020
  2. METHOTREXATE [Suspect]
     Active Substance: METHOTREXATE
     Indication: Product used for unknown indication
     Dosage: SODIUM
     Route: 058
     Dates: start: 2020
  3. AZATHIOPRINE [Suspect]
     Active Substance: AZATHIOPRINE
     Indication: Product used for unknown indication
     Route: 048
     Dates: start: 2019, end: 2019
  4. INFLECTRA [Suspect]
     Active Substance: INFLIXIMAB-DYYB
     Indication: Sarcoidosis
     Dosage: FREQUENCY TEXT: 0,2, 6 WEEKS, THEN EVERY 2 WEEKS
     Route: 042
     Dates: start: 20220725
  5. INFLECTRA [Suspect]
     Active Substance: INFLIXIMAB-DYYB
     Indication: Sarcoidosis
     Route: 042
     Dates: start: 20200623, end: 20220523
  6. INFLECTRA [Suspect]
     Active Substance: INFLIXIMAB-DYYB
     Indication: Sarcoidosis
     Route: 042
  7. INFLECTRA [Suspect]
     Active Substance: INFLIXIMAB-DYYB
     Indication: Sarcoidosis
     Route: 042

REACTIONS (7)
  - Iritis [Recovering/Resolving]
  - Drug ineffective [Unknown]
  - Drug ineffective [Unknown]
  - Ocular sarcoidosis [Recovering/Resolving]
  - Drug ineffective for unapproved indication [Recovering/Resolving]
  - Off label use [Recovering/Resolving]
  - Gastrointestinal disorder [Recovering/Resolving]

NARRATIVE: CASE EVENT DATE: 20190101
